FAERS Safety Report 5648739-4 (Version None)
Quarter: 2008Q1

REPORT INFORMATION
  Report Type: 
  Country: None (occurrence: None)
  Receive Date: 20080131
  Receipt Date: 20071217
  Transmission Date: 20080703
  Serious: No
  Sender: FDA-Public Use
  Company Number: US200712003605

PATIENT
  Age: 57 Year
  Sex: Male
  Weight: 104.3 kg

DRUGS (14)
  1. BYETTA [Suspect]
     Indication: TYPE 2 DIABETES MELLITUS
     Dosage: 5 UG, 2/D, SUBCUTANEOUS
     Route: 058
     Dates: start: 20071201
  2. ACTOS /USA/ (PIOGLITAZONE HYDROCHLORIDE) [Concomitant]
  3. DIOVAN (HYDROCHLOROTHIAZIDE, VALSARTAN) [Concomitant]
  4. TRICOR [Concomitant]
  5. FLOMAX [Concomitant]
  6. CRESTOR (ROSUVASTATIN CLACIUM) [Concomitant]
  7. ACIPHEX [Concomitant]
  8. VALIUM [Concomitant]
  9. ASPIRIN [Concomitant]
  10. OMEGA 3 FISH OIL (FISH OIL) [Concomitant]
  11. ADVIL [Concomitant]
  12. NIACIN [Concomitant]
  13. ... [Concomitant]
  14. ... [Concomitant]

REACTIONS (2)
  - MUSCLE SPASMS [None]
  - WEIGHT DECREASED [None]
